FAERS Safety Report 7174449-0 (Version None)
Quarter: 2010Q4

REPORT INFORMATION
  Report Type: 
  Country: None (occurrence: None)
  Receive Date: 20101202
  Receipt Date: 20101117
  Transmission Date: 20110411
  Serious: Yes (Other)
  Sender: FDA-Public Use
  Company Number: TPH-00295

PATIENT
  Age: 42 Year
  Sex: Female

DRUGS (2)
  1. TRIQUILAR [Suspect]
     Indication: MENSTRUATION IRREGULAR
     Dosage: 1 DF ORAL
     Route: 048
     Dates: end: 20101008
  2. MYONAL (EPERISONE HYDROCHLORIDE) [Concomitant]

REACTIONS (3)
  - INTRACRANIAL PRESSURE INCREASED [None]
  - PAPILLOEDEMA [None]
  - VITH NERVE PARALYSIS [None]
